FAERS Safety Report 8518321-X (Version None)
Quarter: 2012Q3

REPORT INFORMATION
  Report Type: 
  Country: None (occurrence: None)
  Receive Date: 20120718
  Receipt Date: 20120309
  Transmission Date: 20120928
  Serious: No
  Sender: FDA-Public Use
  Company Number: US-BRISTOL-MYERS SQUIBB COMPANY-16369571

PATIENT
  Age: 76 Year
  Sex: Female

DRUGS (2)
  1. LOVENOX [Suspect]
     Indication: SURGERY
     Dates: end: 20111101
  2. COUMADIN [Suspect]
     Indication: SURGERY

REACTIONS (2)
  - NASOPHARYNGITIS [None]
  - PAIN [None]
